FAERS Safety Report 5526428-4 (Version None)
Quarter: 2007Q4

REPORT INFORMATION
  Report Type: 
  Country: None (occurrence: None)
  Receive Date: 20071121
  Receipt Date: 20071121
  Transmission Date: 20080405
  Serious: No
  Sender: FDA-Public Use
  Company Number: None

PATIENT
  Age: 82 Year
  Sex: Male

DRUGS (2)
  1. EPTIFIBATIDE [Suspect]
     Dosage: 180MCG OTHER IV
     Route: 042
     Dates: start: 20061230, end: 20061231
  2. ENOXAPARIN SODIUM [Suspect]
     Dosage: 100MG BID SQ
     Route: 058
     Dates: start: 20061229, end: 20061231

REACTIONS (2)
  - HAEMORRHAGE [None]
  - THROMBOCYTOPENIA [None]
